FAERS Safety Report 5777908-8 (Version None)
Quarter: 2008Q2

REPORT INFORMATION
  Report Type: 
  Country: None (occurrence: None)
  Receive Date: 20080618
  Receipt Date: 20080610
  Transmission Date: 20081010
  Serious: Yes (Hospitalization)
  Sender: FDA-Public Use
  Company Number: US-MERCK-0806USA02300

PATIENT
  Age: 56 Year
  Sex: Female

DRUGS (1)
  1. FOSAMAX [Suspect]
     Indication: OSTEOPOROSIS
     Route: 048
     Dates: start: 20010101, end: 20080101

REACTIONS (6)
  - BONE PAIN [None]
  - COLLAGEN DISORDER [None]
  - FEMUR FRACTURE [None]
  - SCLERAL DISCOLOURATION [None]
  - STRESS FRACTURE [None]
  - TOOTH ANKYLOSIS [None]
